FAERS Safety Report 14323595 (Version 1)
Quarter: 2017Q4

REPORT INFORMATION
  Report Type: Spontaneous
  Country: DZ (occurrence: DZ)
  Receive Date: 20171226
  Receipt Date: 20171226
  Transmission Date: 20180321
  Serious: Yes (Life-Threatening, Other)
  Sender: FDA-Public Use
  Company Number: DZ-ROCHE-2043744

PATIENT
  Age: 2 Month
  Sex: Female
  Weight: 3 kg

DRUGS (2)
  1. GANCICLOVIR. [Suspect]
     Active Substance: GANCICLOVIR
     Indication: CYTOMEGALOVIRUS INFECTION
     Route: 042
     Dates: start: 20171216, end: 20171217
  2. GANCICLOVIR. [Suspect]
     Active Substance: GANCICLOVIR
     Route: 042

REACTIONS (6)
  - Abdominal pain [Recovered/Resolved]
  - Tremor [Recovered/Resolved]
  - Respiratory distress [Recovered/Resolved]
  - Seizure [Recovered/Resolved]
  - Generalised tonic-clonic seizure [Recovered/Resolved]
  - Hypoxia [Recovered/Resolved]

NARRATIVE: CASE EVENT DATE: 20171216
